FAERS Safety Report 5585759-2 (Version None)
Quarter: 2007Q4

REPORT INFORMATION
  Report Type: 
  Country: None (occurrence: None)
  Receive Date: 20071204
  Receipt Date: 20070817
  Transmission Date: 20080405
  Serious: Yes (Other)
  Sender: FDA-Public Use
  Company Number: 07-0079

PATIENT
  Sex: Female

DRUGS (1)
  1. IBUPROFEN TABLETS [Suspect]
     Dosage: 800 MG PO TID
     Route: 048

REACTIONS (1)
  - DRUG INEFFECTIVE [None]
